FAERS Safety Report 15734740 (Version 1)
Quarter: 2018Q4

REPORT INFORMATION
  Report Type: Spontaneous
  Country: NO (occurrence: NO)
  Receive Date: 20181218
  Receipt Date: 20181218
  Transmission Date: 20190205
  Serious: Yes (Hospitalization, Other)
  Sender: FDA-Public Use
  Company Number: PHHY2018NO163005

PATIENT
  Age: 76 Year
  Sex: Male

DRUGS (6)
  1. CIPROFLOXACIN. [Suspect]
     Active Substance: CIPROFLOXACIN
     Indication: DEVICE RELATED INFECTION
     Dosage: 750 MG, BID
     Route: 048
  2. RIFAMPICIN [Suspect]
     Active Substance: RIFAMPIN
     Indication: DEVICE RELATED INFECTION
     Dosage: 450 MG, BID
     Route: 048
  3. RIFAMPICIN [Suspect]
     Active Substance: RIFAMPIN
     Indication: ARTHRITIS INFECTIVE
  4. RIFAMPICIN [Suspect]
     Active Substance: RIFAMPIN
     Indication: LOCALISED INFECTION
  5. CIPROFLOXACIN. [Suspect]
     Active Substance: CIPROFLOXACIN
     Indication: LOCALISED INFECTION
  6. CLOXACILLIN [Suspect]
     Active Substance: CLOXACILLIN
     Indication: LOCALISED INFECTION
     Dosage: 8 G, QD
     Route: 042

REACTIONS (2)
  - Aortic valve prolapse [Recovered/Resolved with Sequelae]
  - Cardiac failure [Unknown]
